FAERS Safety Report 4771575-8 (Version None)
Quarter: 2005Q3

REPORT INFORMATION
  Report Type: 
  Country: None (occurrence: None)
  Receive Date: 20050916
  Receipt Date: 20050907
  Transmission Date: 20060218
  Serious: Yes (Hospitalization)
  Sender: FDA-Public Use
  Company Number: PHBS2005JP13281

PATIENT
  Age: 23 Year
  Sex: Male
  Weight: 51 kg

DRUGS (1)
  1. VOLTAREN [Suspect]
     Indication: ANALGESIC EFFECT
     Dosage: 75 MG, QD
     Route: 048
     Dates: start: 20050731, end: 20050731

REACTIONS (1)
  - BLOOD CREATINE PHOSPHOKINASE INCREASED [None]
